FAERS Safety Report 9060312 (Version 1)
Quarter: 2013Q1

REPORT INFORMATION
  Report Type: Spontaneous
  Country: GB (occurrence: GB)
  Receive Date: 20130212
  Receipt Date: 20130212
  Transmission Date: 20140127
  Serious: Yes (Hospitalization)
  Sender: FDA-Public Use
  Company Number: GB-ROCHE-1189615

PATIENT
  Age: 10 Year
  Sex: Male

DRUGS (4)
  1. TAMIFLU [Suspect]
     Indication: INFLUENZA
     Route: 048
     Dates: start: 20121214, end: 20121217
  2. BACLOFEN [Concomitant]
     Route: 048
     Dates: start: 20120810
  3. LACTULOSE [Concomitant]
  4. DALIVIT (UNITED KINGDOM) [Concomitant]
     Route: 065
     Dates: start: 20071025

REACTIONS (5)
  - Acute hepatic failure [Unknown]
  - Diarrhoea [Unknown]
  - Pyrexia [Unknown]
  - Hepatitis B [Recovering/Resolving]
  - Vomiting [Unknown]
